FAERS Safety Report 7692389-5 (Version None)
Quarter: 2011Q3

REPORT INFORMATION
  Report Type: 
  Country: None (occurrence: None)
  Receive Date: 20110818
  Receipt Date: 20110810
  Transmission Date: 20111222
  Serious: Yes (Hospitalization, Other)
  Sender: FDA-Public Use
  Company Number: US-US-EMD SERONO, INC.-7076492

PATIENT
  Sex: Female

DRUGS (3)
  1. WELLBUTRIN [Concomitant]
     Indication: DEPRESSION
  2. REBIF [Suspect]
     Indication: MULTIPLE SCLEROSIS
     Route: 058
     Dates: start: 20100127
  3. CYMBALTA [Concomitant]
     Indication: DEPRESSION

REACTIONS (9)
  - ARTHRALGIA [None]
  - INTERVERTEBRAL DISC DEGENERATION [None]
  - MENISCUS LESION [None]
  - MUSCULOSKELETAL DISCOMFORT [None]
  - DIABETES MELLITUS [None]
  - INJECTION SITE ERYTHEMA [None]
  - INJECTION SITE DISCOLOURATION [None]
  - CYST [None]
  - BACK DISORDER [None]
